FAERS Safety Report 9157866 (Version 1)
Quarter: 2013Q1

REPORT INFORMATION
  Report Type: Spontaneous
  Country: US (occurrence: US)
  Receive Date: 20130312
  Receipt Date: 20130312
  Transmission Date: 20140127
  Serious: Yes (Other)
  Sender: FDA-Public Use
  Company Number: US-ELI_LILLY_AND_COMPANY-US201202007178

PATIENT
  Sex: Female

DRUGS (17)
  1. FORTEO [Suspect]
     Indication: OSTEOPOROSIS
     Dosage: 20 UG, QD
     Dates: start: 201112
  2. FORTEO [Suspect]
     Dosage: 20 UG, QD
     Dates: start: 201112
  3. FORTEO [Suspect]
     Dosage: 20 UG, QD
     Dates: start: 201112
  4. FORTEO [Suspect]
     Dosage: 20 UG, QD
     Dates: start: 201112
  5. METOPROLOL [Concomitant]
  6. DILTIAZEM [Concomitant]
  7. DIOVAN [Concomitant]
  8. SIMVASTATIN [Concomitant]
  9. UROQID ACID [Concomitant]
  10. ELMIRON [Concomitant]
  11. VITAMIN D3 [Concomitant]
  12. CITRACAL                           /00751520/ [Concomitant]
  13. CENTRUM SILVER [Concomitant]
  14. BABY ASPIRIN [Concomitant]
     Dosage: 2 DF, QD
  15. GARLIC [Concomitant]
  16. VITAMIN C [Concomitant]
  17. VITAMIN B12 [Concomitant]

REACTIONS (5)
  - Renal failure chronic [Unknown]
  - Injection site pruritus [Unknown]
  - Underdose [Unknown]
  - Micturition urgency [Unknown]
  - Pollakiuria [Unknown]
